FAERS Safety Report 20719605 (Version 1)
Quarter: 2022Q2

REPORT INFORMATION
  Report Type: Spontaneous
  Country: TR (occurrence: None)
  Receive Date: 20220418
  Receipt Date: 20220418
  Transmission Date: 20220721
  Serious: Yes (Death, Other)
  Sender: FDA-Public Use
  Company Number: TR-ROCHE-3071192

PATIENT
  Age: 63 Year
  Sex: Female

DRUGS (7)
  1. HERCEPTIN [Suspect]
     Active Substance: TRASTUZUMAB
     Indication: Breast cancer
     Route: 041
     Dates: start: 20220329
  2. PERJETA [Suspect]
     Active Substance: PERTUZUMAB
     Indication: Breast cancer
     Route: 042
     Dates: start: 20220329
  3. PACLITAXEL [Suspect]
     Active Substance: PACLITAXEL
     Indication: Breast cancer
     Route: 042
     Dates: start: 20220329
  4. PHENIRAMINE [Concomitant]
     Active Substance: PHENIRAMINE
  5. DEKORT [Concomitant]
     Active Substance: DEXAMETHASONE
  6. REFASTIL [Concomitant]
  7. KYTRIL [Concomitant]
     Active Substance: GRANISETRON HYDROCHLORIDE

REACTIONS (3)
  - Respiratory arrest [Fatal]
  - Loss of consciousness [Unknown]
  - Abdominal pain upper [Unknown]

NARRATIVE: CASE EVENT DATE: 20220329
